FAERS Safety Report 12962553 (Version 1)
Quarter: 2016Q4

REPORT INFORMATION
  Report Type: Spontaneous
  Country: US (occurrence: US)
  Receive Date: 20161121
  Receipt Date: 20161121
  Transmission Date: 20170207
  Serious: No
  Sender: FDA-Public Use
  Company Number: US-ALLERGAN-1638307US

PATIENT
  Age: 64 Year
  Sex: Male

DRUGS (6)
  1. NEOMYCIN AND POLYMYXIN B SULFATES AND DEXAMET [Concomitant]
     Indication: POSTOPERATIVE CARE
     Dosage: UNK UNK, TID
     Route: 047
     Dates: start: 20160301
  2. LISINOPRIL. [Concomitant]
     Active Substance: LISINOPRIL
     Indication: HYPERTENSION
     Dosage: 40 MG, QD
     Route: 048
  3. COMBIGAN [Suspect]
     Active Substance: BRIMONIDINE TARTRATE\TIMOLOL MALEATE
     Indication: EYE HAEMORRHAGE
     Dosage: 1 GTT, BID
     Route: 047
     Dates: start: 20160301
  4. CARVEDIOL [Concomitant]
     Active Substance: CARVEDILOL
     Indication: HYPERTENSION
     Dosage: UNK UNK, BID
     Route: 048
  5. ATROPINE. [Concomitant]
     Active Substance: ATROPINE
     Indication: MYDRIASIS
     Dosage: UNK UNK, BID
     Route: 047
     Dates: start: 20160301
  6. AVASTIN [Concomitant]
     Active Substance: BEVACIZUMAB
     Indication: PRODUCT USED FOR UNKNOWN INDICATION
     Dosage: UNK UNK, Q MONTH
     Route: 031
     Dates: start: 20160201

REACTIONS (3)
  - Off label use [Unknown]
  - Eye pain [Not Recovered/Not Resolved]
  - Ocular hyperaemia [Recovered/Resolved]

NARRATIVE: CASE EVENT DATE: 20160301
